FAERS Safety Report 5324121-4 (Version None)
Quarter: 2007Q2

REPORT INFORMATION
  Report Type: 
  Country: None (occurrence: None)
  Receive Date: 20070514
  Receipt Date: 20060725
  Transmission Date: 20071010
  Serious: No
  Sender: FDA-Public Use
  Company Number: A0613533A

PATIENT
  Sex: Female

DRUGS (5)
  1. NABUMETONE [Suspect]
     Indication: FIBROMYALGIA
     Route: 048
  2. LIPITOR [Concomitant]
  3. PREMARIN [Concomitant]
  4. NORVASC [Concomitant]
  5. UNIVASC [Concomitant]

REACTIONS (3)
  - DRUG INEFFECTIVE [None]
  - FATIGUE [None]
  - PAIN [None]
